FAERS Safety Report 8228020-X (Version None)
Quarter: 2012Q1

REPORT INFORMATION
  Report Type: 
  Country: None (occurrence: None)
  Receive Date: 20120322
  Receipt Date: 20120123
  Transmission Date: 20120608
  Serious: No
  Sender: FDA-Public Use
  Company Number: US-BRISTOL-MYERS SQUIBB COMPANY-16363681

PATIENT
  Age: 69 Year
  Sex: Male

DRUGS (5)
  1. METFORMIN HCL [Concomitant]
  2. AMLODIPINE [Concomitant]
  3. ERBITUX [Suspect]
     Dosage: 5 TREATMENTS
  4. SIMVASTATIN [Concomitant]
  5. ASPIRIN [Concomitant]

REACTIONS (4)
  - SKIN FISSURES [None]
  - RASH VESICULAR [None]
  - STOMATITIS [None]
  - DRY SKIN [None]
